FAERS Safety Report 6603783-5 (Version None)
Quarter: 2010Q1

REPORT INFORMATION
  Report Type: 
  Country: None (occurrence: None)
  Receive Date: 20100226
  Receipt Date: 20090225
  Transmission Date: 20100710
  Serious: No
  Sender: FDA-Public Use
  Company Number: A0765542A

PATIENT
  Age: 21 Year
  Sex: Female
  Weight: 71.6 kg

DRUGS (4)
  1. LAMICTAL CD [Suspect]
     Indication: EPILEPSY
     Dosage: 150MG TWICE PER DAY
     Route: 048
     Dates: end: 20080701
  2. LAMOTRIGINE [Suspect]
     Indication: EPILEPSY
     Dosage: 175MG TWICE PER DAY
     Route: 048
     Dates: start: 20080701
  3. PRIMACARE [Concomitant]
     Dates: start: 20080401
  4. FOLIC ACID [Concomitant]
     Dosage: 4MG PER DAY

REACTIONS (2)
  - DRUG EXPOSURE DURING PREGNANCY [None]
  - LIVE BIRTH [None]
